FAERS Safety Report 11931645 (Version 1)
Quarter: 2016Q1

REPORT INFORMATION
  Report Type: Spontaneous
  Country: US (occurrence: US)
  Receive Date: 20160120
  Receipt Date: 20160120
  Transmission Date: 20160526
  Serious: No
  Sender: FDA-Public Use
  Company Number: US-INCYTE CORPORATION-2015IN005415

PATIENT
  Age: 56 Year
  Sex: Male
  Weight: 97.9 kg

DRUGS (8)
  1. PROBIOTIC                          /06395501/ [Concomitant]
     Active Substance: BIFIDOBACTERIUM ANIMALIS SUBSP. LACTIS
  2. LEVOTHYROXINE. [Concomitant]
     Active Substance: LEVOTHYROXINE
  3. ALLOPURINOL. [Concomitant]
     Active Substance: ALLOPURINOL
  4. JAKAFI [Suspect]
     Active Substance: RUXOLITINIB
     Indication: MYELOFIBROSIS
     Dosage: 10 MG, BID
     Dates: start: 20151017
  5. VITAMINS NOS [Concomitant]
     Active Substance: VITAMINS
  6. MULTIVITAMIN                       /00097801/ [Concomitant]
     Active Substance: VITAMINS
  7. ESOMEPRAZOLE [Concomitant]
     Active Substance: ESOMEPRAZOLE
  8. HYDROXYUREA. [Suspect]
     Active Substance: HYDROXYUREA

REACTIONS (10)
  - Pruritus [Recovering/Resolving]
  - Dyspepsia [Unknown]
  - Nausea [Unknown]
  - Flatulence [Unknown]
  - Hyperhidrosis [Unknown]
  - Weight increased [Unknown]
  - Motion sickness [Unknown]
  - Hypersplenism [Unknown]
  - Vomiting [Unknown]
  - Anaemia [Unknown]

NARRATIVE: CASE EVENT DATE: 20151019
